FAERS Safety Report 4282923-X (Version None)
Quarter: 2004Q1

REPORT INFORMATION
  Report Type: 
  Country: None (occurrence: None)
  Receive Date: 20040130
  Receipt Date: 20031124
  Transmission Date: 20041129
  Serious: No
  Sender: FDA-Public Use
  Company Number: US-BRISTOL-MYERS SQUIBB COMPANY-12443149

PATIENT
  Age: 39 Year
  Sex: Female

DRUGS (1)
  1. SERZONE [Suspect]
     Indication: DEPRESSION
     Dosage: TAKEN FOR ^YEARS^
     Route: 048

REACTIONS (1)
  - DRUG SCREEN FALSE POSITIVE [None]
